FAERS Safety Report 10246861 (Version 2)
Quarter: 2014Q2

REPORT INFORMATION
  Report Type: Spontaneous
  Country: NL (occurrence: NL)
  Receive Date: 20140619
  Receipt Date: 20140619
  Transmission Date: 20141212
  Serious: Yes (Hospitalization)
  Sender: FDA-Public Use
  Company Number: NL-JNJFOC-20140316089

PATIENT
  Age: 60 Year
  Sex: Male
  Weight: 170 kg

DRUGS (5)
  1. XARELTO [Suspect]
     Indication: EMBOLISM VENOUS
     Route: 048
     Dates: start: 20140320
  2. XARELTO [Suspect]
     Indication: DEEP VEIN THROMBOSIS
     Route: 048
     Dates: start: 20140320
  3. INNOHEP [Interacting]
     Indication: PRODUCT USED FOR UNKNOWN INDICATION
     Dosage: 0.7 T0 0.9 ML
     Route: 065
     Dates: start: 20140320, end: 20140320
  4. WARFARIN [Concomitant]
     Route: 065
     Dates: start: 20140416
  5. ASCAL [Concomitant]
     Route: 065
     Dates: start: 20140320, end: 20140320

REACTIONS (3)
  - Thoracic haemorrhage [Recovered/Resolved]
  - Rib fracture [Recovered/Resolved]
  - Drug interaction [Unknown]
